FAERS Safety Report 21928190 (Version 1)
Quarter: 2023Q1

REPORT INFORMATION
  Report Type: Spontaneous
  Country: CH (occurrence: CH)
  Receive Date: 20230130
  Receipt Date: 20230130
  Transmission Date: 20230417
  Serious: Yes (Hospitalization)
  Sender: FDA-Public Use
  Company Number: CH-SM-2022-19479

PATIENT
  Age: 37 Year
  Sex: Female

DRUGS (23)
  1. ACTEMRA [Suspect]
     Active Substance: TOCILIZUMAB
     Indication: Product used for unknown indication
     Route: 042
     Dates: start: 20220723, end: 20220725
  2. PROPOFOL [Suspect]
     Active Substance: PROPOFOL
     Indication: Product used for unknown indication
     Route: 042
     Dates: start: 20220720, end: 20220806
  3. YESCARTA [Suspect]
     Active Substance: AXICABTAGENE CILOLEUCEL
     Indication: Product used for unknown indication
     Route: 042
     Dates: start: 20220722, end: 20220722
  4. DAFALGAN [Suspect]
     Active Substance: ACETAMINOPHEN
     Indication: Product used for unknown indication
     Route: 065
     Dates: start: 20220715, end: 20220808
  5. PIPERACILLIN SODIUM\TAZOBACTAM SODIUM [Suspect]
     Active Substance: PIPERACILLIN SODIUM\TAZOBACTAM SODIUM
     Indication: Product used for unknown indication
     Route: 042
     Dates: start: 20220724, end: 20220803
  6. KETALAR [Suspect]
     Active Substance: KETAMINE HYDROCHLORIDE
     Indication: Product used for unknown indication
     Route: 042
     Dates: start: 20220721, end: 20220803
  7. DIFLUCAN [Suspect]
     Active Substance: FLUCONAZOLE
     Indication: Product used for unknown indication
     Route: 042
     Dates: start: 20220719, end: 20220719
  8. CIMETIDINE [Suspect]
     Active Substance: CIMETIDINE
     Indication: Product used for unknown indication
     Route: 042
     Dates: start: 20220721, end: 20220721
  9. ERYTHROCIN [Suspect]
     Active Substance: ERYTHROMYCIN LACTOBIONATE
     Indication: Product used for unknown indication
     Route: 042
     Dates: start: 20220726, end: 20220729
  10. METAMIZOLE [Concomitant]
     Active Substance: METAMIZOLE
     Route: 065
     Dates: start: 20220926
  11. DEXAMETHASONE [Concomitant]
     Active Substance: DEXAMETHASONE
     Route: 065
     Dates: start: 20220926
  12. BACTRIM [Concomitant]
     Active Substance: SULFAMETHOXAZOLE\TRIMETHOPRIM
     Route: 065
     Dates: start: 20220926
  13. NEXIUM [Concomitant]
     Active Substance: ESOMEPRAZOLE MAGNESIUM
     Route: 065
     Dates: start: 20220926
  14. TOPAMAX [Concomitant]
     Active Substance: TOPIRAMATE
     Route: 065
     Dates: start: 20220926
  15. ESCITALOPRAM [Concomitant]
     Active Substance: ESCITALOPRAM OXALATE
     Route: 065
     Dates: start: 20220926
  16. LACOSAMIDUM [Concomitant]
     Route: 065
     Dates: start: 20220926
  17. CLONAZEPAM [Concomitant]
     Active Substance: CLONAZEPAM
     Route: 065
     Dates: start: 20220720, end: 20220720
  18. ONDANSETRON [Concomitant]
     Active Substance: ONDANSETRON
     Route: 065
     Dates: start: 20220926
  19. ZOLPIDEM [Concomitant]
     Active Substance: ZOLPIDEM TARTRATE
     Route: 065
     Dates: start: 20220715, end: 20220719
  20. CLEMASTINE [Concomitant]
     Active Substance: CLEMASTINE
     Route: 065
     Dates: start: 20220719, end: 20220719
  21. BRIVIACT [Concomitant]
     Active Substance: BRIVARACETAM
     Route: 065
     Dates: start: 20220926
  22. FYCOMPA [Concomitant]
     Active Substance: PERAMPANEL
     Route: 065
     Dates: start: 20220926
  23. OLANZAPINE [Concomitant]
     Active Substance: OLANZAPINE
     Route: 065
     Dates: start: 20220716, end: 20220720

REACTIONS (4)
  - Drug-induced liver injury [Recovering/Resolving]
  - Pancreatitis [Recovering/Resolving]
  - Leukoencephalopathy [Not Recovered/Not Resolved]
  - Cytokine release syndrome [Recovering/Resolving]

NARRATIVE: CASE EVENT DATE: 20220724
